FAERS Safety Report 12323738 (Version 2)
Quarter: 2016Q2

REPORT INFORMATION
  Report Type: Spontaneous
  Country: US (occurrence: US)
  Receive Date: 20160502
  Receipt Date: 20160525
  Transmission Date: 20160815
  Serious: Yes (Other)
  Sender: FDA-Public Use
  Company Number: US-BAYER-2016-079588

PATIENT
  Age: 52 Year
  Sex: Female

DRUGS (2)
  1. MIRENA [Suspect]
     Active Substance: LEVONORGESTREL
     Indication: ABDOMINAL PAIN LOWER
  2. MIRENA [Suspect]
     Active Substance: LEVONORGESTREL
     Indication: MENORRHAGIA
     Dosage: 20 MCG/24HR, CONT
     Route: 015
     Dates: start: 20070108, end: 20160418

REACTIONS (10)
  - Post procedural haemorrhage [Recovered/Resolved]
  - Metrorrhagia [Unknown]
  - Weight increased [Recovered/Resolved]
  - Weight decreased [Unknown]
  - Product use issue [Recovered/Resolved]
  - Hypomenorrhoea [Unknown]
  - Amenorrhoea [Unknown]
  - Abdominal pain lower [Not Recovered/Not Resolved]
  - Product use issue [Recovered/Resolved]
  - Procedural headache [Recovered/Resolved]

NARRATIVE: CASE EVENT DATE: 1998
